FAERS Safety Report 8816795 (Version 2)
Quarter: 2012Q4

REPORT INFORMATION
  Report Type: Spontaneous
  Country: DK (occurrence: None)
  Receive Date: 20121001
  Receipt Date: 20121009
  Transmission Date: 20130627
  Serious: Yes (Other)
  Sender: FDA-Public Use
  Company Number: 2012MA011720

PATIENT
  Age: 8 Year
  Sex: Female

DRUGS (7)
  1. DIAZEPAM [Suspect]
     Indication: EPILEPTIC SEIZURE
     Dosage: 10 mg;prn;rtl
     Route: 054
     Dates: start: 2005, end: 2012
  2. ABSENOR [Concomitant]
  3. LAMICTAL [Concomitant]
  4. VIMPAT [Concomitant]
  5. LOSEC [Concomitant]
  6. PEGORION [Concomitant]
  7. RISPERDAL [Concomitant]

REACTIONS (4)
  - Respiratory arrest [None]
  - Respiratory depression [None]
  - Drug ineffective [None]
  - Device issue [None]
